FAERS Safety Report 15651361 (Version 2)
Quarter: 2019Q1

REPORT INFORMATION
  Report Type: Spontaneous
  Country: US (occurrence: US)
  Receive Date: 20181123
  Receipt Date: 20190206
  Transmission Date: 20190417
  Serious: Yes (Other)
  Sender: FDA-Public Use
  Company Number: US-SA-2018SA317827

PATIENT
  Age: 55 Year
  Sex: Female
  Weight: 68 kg

DRUGS (5)
  1. TAXOTERE [Suspect]
     Active Substance: DOCETAXEL
     Dosage: UNK, Q3W (20 MG- 40 MG)
     Route: 042
     Dates: start: 20091202, end: 20091202
  2. NEOSAR [Concomitant]
     Active Substance: CYCLOPHOSPHAMIDE
     Route: 065
  3. CYTOXAN [Concomitant]
     Active Substance: CYCLOPHOSPHAMIDE
     Route: 065
  4. TAXOTERE [Suspect]
     Active Substance: DOCETAXEL
     Dosage: UNK
     Route: 042
     Dates: start: 20100113, end: 20100113
  5. TAXOTERE [Suspect]
     Active Substance: DOCETAXEL
     Indication: BREAST CANCER FEMALE
     Dosage: UNK UNK, Q3W (20 MG- 40 MG)
     Route: 042
     Dates: start: 20091111, end: 20091111

REACTIONS (1)
  - Alopecia [Not Recovered/Not Resolved]
